FAERS Safety Report 8909657 (Version 1)
Quarter: 2012Q4

REPORT INFORMATION
  Report Type: Spontaneous
  Country: None (occurrence: None)
  Receive Date: 20121109
  Receipt Date: 20121109
  Transmission Date: 20130627
  Serious: Yes (Hospitalization, Other)
  Sender: FDA-Public Use
  Company Number: DAV-AE-GLY-12-01

PATIENT
  Age: 57 Year
  Sex: Male

DRUGS (1)
  1. GLYBURIDE [Suspect]

REACTIONS (6)
  - Hypoglycaemia [None]
  - Overdose [None]
  - Aspartate aminotransferase increased [None]
  - International normalised ratio increased [None]
  - Unresponsive to stimuli [None]
  - Toxicity to various agents [None]
